FAERS Safety Report 7206045-0 (Version None)
Quarter: 2010Q4

REPORT INFORMATION
  Report Type: 
  Country: None (occurrence: None)
  Receive Date: 20101229
  Receipt Date: 20101229
  Transmission Date: 20110411
  Serious: No
  Sender: FDA-Public Use
  Company Number: None

PATIENT
  Sex: Male
  Weight: 52.1637 kg

DRUGS (1)
  1. NITROFURANTOIN MONOHYD MAC (MACROBID) [Suspect]
     Indication: URINARY TRACT INFECTION
     Dosage: 100MG CAPS 1 TWICE DAILY
     Dates: start: 20101210, end: 20101214

REACTIONS (2)
  - INSOMNIA [None]
  - POLYURIA [None]
